FAERS Safety Report 4363896-8 (Version None)
Quarter: 2004Q2

REPORT INFORMATION
  Report Type: 
  Country: None (occurrence: None)
  Receive Date: 20040513
  Receipt Date: 20040506
  Transmission Date: 20050107
  Serious: Yes (Hospitalization)
  Sender: FDA-Public Use
  Company Number: 2004-115445-NL

PATIENT
  Age: 81 Year
  Sex: Female
  Weight: 86 kg

DRUGS (8)
  1. TICE BCG [Suspect]
     Indication: BLADDER CANCER RECURRENT
     Dosage: CFU INTRAVESICAL,  FOR6 WEEKS
     Dates: start: 20030304
  2. TICE BCG [Suspect]
     Indication: BLADDER CANCER RECURRENT
     Dosage: CFU INTRAVESICAL, 1/10 DOSE FOR 3 WEEKS
     Route: 043
     Dates: start: 20030623
  3. TICE BCG [Suspect]
     Indication: BLADDER CANCER RECURRENT
     Dosage: CFU INTRAVESICAL, 1/10 DOSE
     Route: 043
     Dates: start: 20031004
  4. TICE BCG [Suspect]
     Indication: BLADDER CANCER RECURRENT
     Dosage: CFU INTRAVESICAL, 1/10 DOSE
     Route: 043
     Dates: start: 20040420, end: 20040420
  5. INTRON A [Suspect]
     Indication: BLADDER CANCER RECURRENT
     Dosage: 50 IU WEEKLY INTRAVESICAL, FOR 6 WEEKS
     Route: 043
     Dates: start: 20030623
  6. INTRON A [Suspect]
     Indication: BLADDER CANCER RECURRENT
     Dosage: 50 IU WEEKLY INTRAVESICAL, FOR 3 WEEKS
     Route: 043
     Dates: start: 20030623
  7. INTRON A [Suspect]
     Indication: BLADDER CANCER RECURRENT
     Dosage: 50 IU WEEKLY INTRAVESICAL, FOR 3 WEEKS
     Route: 043
     Dates: start: 20031004
  8. INTRON A [Suspect]
     Indication: BLADDER CANCER RECURRENT
     Dosage: 50 IU WEEKLY INTRAVESICAL, FOR 3 WEEKS
     Route: 043
     Dates: start: 20040420, end: 20040420

REACTIONS (4)
  - ANAPHYLACTIC REACTION [None]
  - CYANOSIS [None]
  - RASH [None]
  - WHEEZING [None]
